FAERS Safety Report 11300786 (Version 1)
Quarter: 2015Q3

REPORT INFORMATION
  Report Type: Spontaneous
  Country: US (occurrence: US)
  Receive Date: 20150722
  Receipt Date: 20150722
  Transmission Date: 20151125
  Serious: Yes (Other)
  Sender: FDA-Public Use
  Company Number: US-ELI_LILLY_AND_COMPANY-US201403010700

PATIENT
  Age: 55 Year
  Sex: Male

DRUGS (4)
  1. EFFIENT [Suspect]
     Active Substance: PRASUGREL HYDROCHLORIDE
     Indication: PERCUTANEOUS CORONARY INTERVENTION
  2. ASA [Concomitant]
     Active Substance: ASPIRIN
     Indication: ACUTE CORONARY SYNDROME
     Route: 048
  3. EFFIENT [Suspect]
     Active Substance: PRASUGREL HYDROCHLORIDE
     Indication: ACUTE CORONARY SYNDROME
     Dosage: 60 MG, SINGLE
     Route: 048
  4. ANGIOMAX [Concomitant]
     Active Substance: BIVALIRUDIN
     Indication: ACUTE CORONARY SYNDROME

REACTIONS (1)
  - Vascular pseudoaneurysm [Unknown]
